FAERS Safety Report 7871465-8 (Version None)
Quarter: 2011Q4

REPORT INFORMATION
  Report Type: 
  Country: None (occurrence: None)
  Receive Date: 20111029
  Receipt Date: 20110302
  Transmission Date: 20120403
  Serious: No
  Sender: FDA-Public Use
  Company Number: US-AMGEN-USASP2011011950

PATIENT
  Age: 46 Year
  Sex: Male

DRUGS (2)
  1. ENBREL [Suspect]
     Indication: ANKYLOSING SPONDYLITIS
     Dosage: 50 MG, QWK
     Dates: start: 20050701, end: 20110305
  2. ENBREL [Suspect]
     Indication: OSTEOARTHRITIS

REACTIONS (7)
  - ARTHRALGIA [None]
  - PYREXIA [None]
  - NECK PAIN [None]
  - BACK PAIN [None]
  - OSTEOARTHRITIS [None]
  - PAIN [None]
  - ANKYLOSING SPONDYLITIS [None]
